FAERS Safety Report 5189077-6 (Version None)
Quarter: 2006Q4

REPORT INFORMATION
  Report Type: 
  Country: None (occurrence: None)
  Receive Date: 20061215
  Receipt Date: 20061213
  Transmission Date: 20070319
  Serious: No
  Sender: FDA-Public Use
  Company Number: HQWYE074114DEC06

PATIENT
  Age: 76 Year
  Sex: Female
  Weight: 76.73 kg

DRUGS (7)
  1. ZOSYN [Suspect]
     Indication: ILEUS
     Dosage: 3.375 G 1X PER 6 HR, INTRAVENOUS
     Route: 042
     Dates: start: 20061211, end: 20061212
  2. PROTONIX [Concomitant]
  3. INSULIN [Concomitant]
  4. ANCEF [Concomitant]
  5. SOLUCORT (PREDNISOLONE) [Concomitant]
  6. SOLLUCORT (PREDNISOLONE) [Concomitant]
  7. HYDROCORTISONE [Concomitant]

REACTIONS (2)
  - ATRIOVENTRICULAR BLOCK [None]
  - BRADYCARDIA [None]
